FAERS Safety Report 8854921 (Version 2)
Quarter: 2012Q4

REPORT INFORMATION
  Report Type: 
  Country: IR (occurrence: IR)
  Receive Date: 20121023
  Receipt Date: 20121228
  Transmission Date: 20130627
  Serious: Yes (Other)
  Sender: FDA-Public Use
  Company Number: IR-GENZYME-CERZ-1002675

PATIENT
  Age: 23 Year
  Sex: Female

DRUGS (2)
  1. CEREZYME [Suspect]
     Indication: GAUCHER^S DISEASE
     Dosage: UNK
     Route: 042
     Dates: start: 201205
  2. CEREZYME [Suspect]

REACTIONS (3)
  - Haemolysis [Unknown]
  - Drug tolerance decreased [Unknown]
  - Rash [Unknown]
